FAERS Safety Report 6637341-3 (Version None)
Quarter: 2010Q1

REPORT INFORMATION
  Report Type: 
  Country: None (occurrence: None)
  Receive Date: 20100311
  Receipt Date: 20100226
  Transmission Date: 20100710
  Serious: Yes (Hospitalization, Other)
  Sender: FDA-Public Use
  Company Number: 006666

PATIENT
  Sex: Female
  Weight: 65 kg

DRUGS (12)
  1. KEPPRA [Suspect]
     Indication: CEREBROVASCULAR ACCIDENT
     Dosage: SEE IMAGE
     Route: 048
     Dates: start: 20090701, end: 20091201
  2. KEPPRA [Suspect]
     Indication: EPILEPSY
     Dosage: SEE IMAGE
     Route: 048
     Dates: start: 20090701, end: 20091201
  3. KEPPRA [Suspect]
     Indication: CEREBROVASCULAR ACCIDENT
     Dosage: SEE IMAGE
     Route: 048
     Dates: start: 20090701
  4. KEPPRA [Suspect]
     Indication: EPILEPSY
     Dosage: SEE IMAGE
     Route: 048
     Dates: start: 20090701
  5. KEPPRA [Suspect]
     Indication: CEREBROVASCULAR ACCIDENT
     Dosage: SEE IMAGE
     Route: 048
     Dates: start: 20091210
  6. KEPPRA [Suspect]
     Indication: EPILEPSY
     Dosage: SEE IMAGE
     Route: 048
     Dates: start: 20091210
  7. MARCUMAR [Concomitant]
  8. TEBONIN /01003103/  ) [Concomitant]
  9. CIPRALEX /01588501/ [Concomitant]
  10. MIRTAZAPINE [Concomitant]
  11. RIVOTRIL [Concomitant]
  12. TEGRETOL [Concomitant]

REACTIONS (6)
  - AURA [None]
  - CONDITION AGGRAVATED [None]
  - EPILEPSY [None]
  - FOOD INTERACTION [None]
  - GAIT DISTURBANCE [None]
  - SUICIDAL IDEATION [None]
